FAERS Safety Report 10930731 (Version 1)
Quarter: 2015Q1

REPORT INFORMATION
  Report Type: Spontaneous
  Country: GB (occurrence: GB)
  Receive Date: 20150319
  Receipt Date: 20150319
  Transmission Date: 20150721
  Serious: Yes (Life-Threatening, Other)
  Sender: FDA-Public Use
  Company Number: GB-PFIZER INC-2015088498

PATIENT
  Age: 70 Year
  Sex: Male
  Weight: 84 kg

DRUGS (4)
  1. ADALAT CC [Concomitant]
     Active Substance: NIFEDIPINE
     Dosage: UNK
  2. CANDESARTAN [Concomitant]
     Active Substance: CANDESARTAN
     Dosage: 8 MG, UNK
  3. BENDROFLUMETHIAZIDE [Concomitant]
     Active Substance: BENDROFLUMETHIAZIDE
     Dosage: UNK
  4. LIPITOR [Suspect]
     Active Substance: ATORVASTATIN CALCIUM
     Dosage: 10 MG, FOR ABOUT A YEAR
     Route: 048

REACTIONS (7)
  - Cough [Recovered/Resolved]
  - Rhinorrhoea [Recovered/Resolved]
  - Chronic throat clearing [Recovered/Resolved]
  - Sneezing [Recovered/Resolved]
  - Upper-airway cough syndrome [Recovered/Resolved]
  - Trismus [Recovered/Resolved]
  - Muscle spasms [Recovered/Resolved]
